FAERS Safety Report 8581154-2 (Version None)
Quarter: 2012Q3

REPORT INFORMATION
  Report Type: 
  Country: None (occurrence: None)
  Receive Date: 20120809
  Receipt Date: 20120731
  Transmission Date: 20120928
  Serious: Yes (Hospitalization, Other)
  Sender: FDA-Public Use
  Company Number: US-COVIDIEN/TYCO HEALTHCARE/MALLINCKRODT-T201202989

PATIENT
  Age: 39 Year
  Sex: Female

DRUGS (2)
  1. METHADOSE [Suspect]
  2. COCAINE [Suspect]
     Dosage: UNK

REACTIONS (10)
  - LEUKOENCEPHALOPATHY [None]
  - FATIGUE [None]
  - AFFECT LABILITY [None]
  - DEPRESSED LEVEL OF CONSCIOUSNESS [None]
  - MENTAL STATUS CHANGES [None]
  - PNEUMONIA ASPIRATION [None]
  - OVERDOSE [None]
  - DISTURBANCE IN ATTENTION [None]
  - GAIT DISTURBANCE [None]
  - HYPOTENSION [None]
